FAERS Safety Report 25348141 (Version 1)
Quarter: 2025Q2

REPORT INFORMATION
  Report Type: Spontaneous
  Country: JP (occurrence: JP)
  Receive Date: 20250522
  Receipt Date: 20250522
  Transmission Date: 20250716
  Serious: Yes (Hospitalization, Disabling, Other)
  Sender: EXELIXIS
  Company Number: JP-BRISTOL-MYERS SQUIBB COMPANY-2023-105894

PATIENT
  Age: 73 Year
  Sex: Male
  Weight: 59.1 kg

DRUGS (14)
  1. CABOMETYX [Suspect]
     Active Substance: CABOZANTINIB S-MALATE
     Indication: Renal cancer
     Route: 048
     Dates: start: 20230119, end: 20230317
  2. OPDIVO [Suspect]
     Active Substance: NIVOLUMAB
     Indication: Metastatic renal cell carcinoma
     Dosage: 240 MG, Q2WEEKS
     Route: 041
     Dates: start: 20230120, end: 20230303
  3. OPDIVO [Suspect]
     Active Substance: NIVOLUMAB
     Dates: start: 20230203
  4. OPDIVO [Suspect]
     Active Substance: NIVOLUMAB
     Dates: start: 20230217
  5. OPDIVO [Suspect]
     Active Substance: NIVOLUMAB
     Dates: end: 20230303
  6. PREDNISOLONE [Suspect]
     Active Substance: PREDNISOLONE
     Indication: Mucocutaneous disorder
     Dates: start: 20230317, end: 20230323
  7. PREDNISOLONE [Suspect]
     Active Substance: PREDNISOLONE
     Dates: start: 20230324, end: 20230328
  8. PREDNISOLONE [Suspect]
     Active Substance: PREDNISOLONE
     Dates: start: 20230329
  9. PREDNISOLONE [Suspect]
     Active Substance: PREDNISOLONE
     Dates: start: 20230413, end: 20230418
  10. DENOSUMAB [Concomitant]
     Active Substance: DENOSUMAB
     Dates: start: 20221227
  11. CANDESARTAN [Concomitant]
     Active Substance: CANDESARTAN
     Route: 048
     Dates: start: 20221227
  12. AMLODIPINE [Concomitant]
     Active Substance: AMLODIPINE BESYLATE
     Route: 048
     Dates: start: 20221227
  13. ASPIRIN [Concomitant]
     Active Substance: ASPIRIN
     Indication: Myocardial infarction
     Dates: start: 20230120
  14. ATORVASTATIN [Concomitant]
     Active Substance: ATORVASTATIN
     Indication: Myocardial infarction
     Dates: start: 20230120

REACTIONS (14)
  - Hypothyroidism [Recovered/Resolved]
  - Mucocutaneous disorder [Not Recovered/Not Resolved]
  - Lung abscess [Recovered/Resolved]
  - Ventricular tachycardia [Unknown]
  - Carotid artery occlusion [Unknown]
  - Thrombophlebitis migrans [Unknown]
  - Pneumonia cytomegaloviral [Not Recovered/Not Resolved]
  - Pneumonia [Unknown]
  - Malignant neoplasm progression [Unknown]
  - Infection susceptibility increased [Unknown]
  - Periodontal disease [Unknown]
  - Alanine aminotransferase increased [Unknown]
  - Aspartate aminotransferase increased [Unknown]
  - Stomatitis [Unknown]

NARRATIVE: CASE EVENT DATE: 20230201
